FAERS Safety Report 6158489-6 (Version None)
Quarter: 2009Q2

REPORT INFORMATION
  Report Type: 
  Country: None (occurrence: None)
  Receive Date: 20090408
  Receipt Date: 20090121
  Transmission Date: 20091009
  Serious: Yes (Death)
  Sender: FDA-Public Use
  Company Number: BMS-LI-2009-0037-V001

PATIENT
  Age: 44 Year
  Sex: Female

DRUGS (13)
  1. TRAZODONE HYDROCHLORIDE [Suspect]
  2. BUSPIRONE HCL [Suspect]
  3. DULOXETINE HYDROCHLORIDE [Suspect]
  4. LAMOTRIGINE [Suspect]
  5. HYDROXYZINE [Suspect]
  6. ZIPRASIDONE HCL [Suspect]
  7. CHLORPROMAZINE [Suspect]
  8. PENICILLIN [Suspect]
  9. CHLORDIAZEPOXIDE [Suspect]
  10. BUPROPION HCL [Suspect]
  11. THYROID PREPARATION [Suspect]
  12. CYPROHEPTADINE HYDROCHLORIDE [Suspect]
  13. ALCOHOL [Suspect]

REACTIONS (3)
  - CARDIAC ARREST [None]
  - COMPLETED SUICIDE [None]
  - RESPIRATORY ARREST [None]
